FAERS Safety Report 12179239 (Version 2)
Quarter: 2023Q1

REPORT INFORMATION
  Report Type: Spontaneous
  Country: CA (occurrence: CA)
  Receive Date: 20160314
  Receipt Date: 20230113
  Transmission Date: 20230417
  Serious: Yes (Other)
  Sender: FDA-Public Use
  Company Number: CA-BAXTER-2016BAX010913

PATIENT
  Age: 21 Year
  Sex: Male

DRUGS (19)
  1. ISOFLURANE [Suspect]
     Active Substance: ISOFLURANE
     Indication: Maintenance of anaesthesia
     Dosage: UNK
     Route: 055
  2. ISOFLURANE [Suspect]
     Active Substance: ISOFLURANE
     Indication: Status epilepticus
  3. ISOFLURANE [Suspect]
     Active Substance: ISOFLURANE
     Indication: Off label use
  4. PROPOFOL [Suspect]
     Active Substance: PROPOFOL
     Indication: Maintenance of anaesthesia
     Dosage: PRN
     Route: 065
  5. PROPOFOL [Suspect]
     Active Substance: PROPOFOL
     Indication: Status epilepticus
  6. MIDAZOLAM [Suspect]
     Active Substance: MIDAZOLAM
     Indication: Maintenance of anaesthesia
     Dosage: UNK
     Route: 065
  7. MIDAZOLAM [Suspect]
     Active Substance: MIDAZOLAM
     Indication: Status epilepticus
  8. PHENYTOIN [Concomitant]
     Active Substance: PHENYTOIN
     Indication: Maintenance of anaesthesia
     Dosage: PRN
     Route: 065
  9. PHENYTOIN [Concomitant]
     Active Substance: PHENYTOIN
     Indication: Status epilepticus
  10. VALPROIC ACID [Concomitant]
     Active Substance: VALPROIC ACID
     Indication: Maintenance of anaesthesia
     Dosage: PRN
     Route: 065
  11. VALPROIC ACID [Concomitant]
     Active Substance: VALPROIC ACID
     Indication: Status epilepticus
  12. LEVETIRACETAM [Concomitant]
     Active Substance: LEVETIRACETAM
     Indication: Maintenance of anaesthesia
     Dosage: PRN
     Route: 065
  13. LEVETIRACETAM [Concomitant]
     Active Substance: LEVETIRACETAM
     Indication: Status epilepticus
  14. PHENOBARBITAL [Concomitant]
     Active Substance: PHENOBARBITAL
     Indication: Maintenance of anaesthesia
     Dosage: 100 MILLIGRAM,BID, 12 HOURS
     Route: 042
  15. PHENOBARBITAL [Concomitant]
     Active Substance: PHENOBARBITAL
     Indication: Status epilepticus
  16. LACOSAMIDE [Concomitant]
     Active Substance: LACOSAMIDE
     Indication: Maintenance of anaesthesia
     Dosage: UNK
     Route: 065
  17. LACOSAMIDE [Concomitant]
     Active Substance: LACOSAMIDE
     Indication: Status epilepticus
  18. IMMUNOGLOBULIN [Concomitant]
     Indication: Status epilepticus
     Dosage: UNK
     Route: 042
  19. METHYLPREDNISOLONE [Concomitant]
     Active Substance: METHYLPREDNISOLONE
     Indication: Status epilepticus
     Dosage: PRN
     Route: 042

REACTIONS (1)
  - Intestinal ischaemia [Unknown]
